FAERS Safety Report 8056342-4 (Version None)
Quarter: 2012Q1

REPORT INFORMATION
  Report Type: 
  Country: None (occurrence: None)
  Receive Date: 20120119
  Receipt Date: 20120109
  Transmission Date: 20120608
  Serious: Yes (Hospitalization)
  Sender: FDA-Public Use
  Company Number: US-ELI_LILLY_AND_COMPANY-US201107003485

PATIENT
  Age: 68 Year
  Sex: Female

DRUGS (8)
  1. FORTEO [Suspect]
     Indication: OSTEOPOROSIS
     Dosage: 20 UG, QD
     Route: 065
     Dates: start: 20110601
  2. POTASSIUM CHLORIDE [Concomitant]
  3. LEVOXYL [Concomitant]
  4. FORTEO [Suspect]
     Dosage: 20 UG, QD
     Route: 065
  5. LAMOTRIGINE [Concomitant]
  6. LOMOTIL [Concomitant]
  7. LASIX [Concomitant]
     Dosage: 40 MG, UNK
  8. FOLIC ACID [Concomitant]

REACTIONS (3)
  - FOOT FRACTURE [None]
  - FALL [None]
  - KNEE ARTHROPLASTY [None]
